FAERS Safety Report 4968916-5 (Version None)
Quarter: 2006Q2

REPORT INFORMATION
  Report Type: 
  Country: None (occurrence: None)
  Receive Date: 20060411
  Receipt Date: 20051102
  Transmission Date: 20061013
  Serious: Yes (Hospitalization)
  Sender: FDA-Public Use
  Company Number: US-MERCK-0511USA00635

PATIENT
  Age: 71 Year
  Sex: Female
  Weight: 84 kg

DRUGS (11)
  1. VIOXX [Suspect]
     Indication: RHEUMATOID ARTHRITIS
     Route: 048
     Dates: start: 20010409, end: 20031001
  2. VIOXX [Suspect]
     Route: 048
     Dates: start: 20040501, end: 20040901
  3. VIOXX [Suspect]
     Indication: OSTEOARTHRITIS
     Route: 048
     Dates: start: 20010409, end: 20031001
  4. VIOXX [Suspect]
     Route: 048
     Dates: start: 20040501, end: 20040901
  5. PROTONIX [Concomitant]
     Indication: GASTROOESOPHAGEAL REFLUX DISEASE
     Route: 048
  6. LEUCOVORIN [Concomitant]
     Route: 065
  7. METHOTREXATE [Concomitant]
     Route: 051
  8. PREDNISONE [Concomitant]
     Route: 065
  9. BEXTRA [Suspect]
     Route: 048
     Dates: start: 20040311, end: 20040713
  10. CELEBREX [Suspect]
     Indication: RHEUMATOID ARTHRITIS
     Route: 065
     Dates: start: 19990625
  11. CELEBREX [Suspect]
     Indication: OSTEOARTHRITIS
     Route: 065
     Dates: start: 19990625

REACTIONS (19)
  - ACUTE CORONARY SYNDROME [None]
  - ACUTE MYOCARDIAL INFARCTION [None]
  - ANGINA UNSTABLE [None]
  - CARDIAC DISORDER [None]
  - CHEST DISCOMFORT [None]
  - CHRONIC OBSTRUCTIVE PULMONARY DISEASE [None]
  - CORONARY ARTERY DISEASE [None]
  - CORONARY ARTERY STENOSIS [None]
  - GENERALISED ANXIETY DISORDER [None]
  - HEART RATE IRREGULAR [None]
  - HYPERLIPIDAEMIA [None]
  - HYPERTENSION [None]
  - HYPOKALAEMIA [None]
  - LEUKOCYTOSIS [None]
  - MYOCARDIAL INFARCTION [None]
  - MYOCARDIAL ISCHAEMIA [None]
  - OEDEMA [None]
  - RHEUMATOID ARTHRITIS [None]
  - VENTRICULAR FIBRILLATION [None]
